FAERS Safety Report 10760937 (Version 1)
Quarter: 2015Q1

REPORT INFORMATION
  Report Type: Spontaneous
  Country: US (occurrence: None)
  Receive Date: 20150203
  Receipt Date: 20150203
  Transmission Date: 20150721
  Serious: Yes (Life-Threatening, Hospitalization, Other)
  Sender: FDA-Public Use
  Company Number: None

PATIENT
  Age: 62 Year
  Sex: Male
  Weight: 92.08 kg

DRUGS (1)
  1. LEVAQUIN [Suspect]
     Active Substance: LEVOFLOXACIN
     Indication: URETHRAL STENT REMOVAL
     Dosage: 1 ONCE DAILY TAKEN BY MOUTH
     Route: 048
     Dates: start: 20150126, end: 20150126

REACTIONS (13)
  - Rash generalised [None]
  - Insomnia [None]
  - Malaise [None]
  - Motor dysfunction [None]
  - Fatigue [None]
  - Pain in extremity [None]
  - Vomiting [None]
  - Atrial fibrillation [None]
  - Loss of consciousness [None]
  - Hyperhidrosis [None]
  - Pain [None]
  - Back pain [None]
  - Musculoskeletal pain [None]

NARRATIVE: CASE EVENT DATE: 20150126
